FAERS Safety Report 10698902 (Version 3)
Quarter: 2015Q1

REPORT INFORMATION
  Report Type: Spontaneous
  Country: US (occurrence: US)
  Receive Date: 20150108
  Receipt Date: 20150205
  Transmission Date: 20150721
  Serious: Yes (Death, Life-Threatening, Disabling, Other)
  Sender: FDA-Public Use
  Company Number: US-009507513-1501USA000928

PATIENT
  Age: 48 Year
  Sex: Male
  Weight: 94.79 kg

DRUGS (9)
  1. GABAPENTIN. [Concomitant]
     Active Substance: GABAPENTIN
     Dosage: 1 DF, TWICE A DAY
     Route: 048
     Dates: start: 20140826
  2. LORAZEPAM. [Concomitant]
     Active Substance: LORAZEPAM
     Dosage: 1 DF, 3 TIMES A DAY, AS NEEDED
     Route: 048
     Dates: start: 20140312
  3. METFORMIN [Concomitant]
     Active Substance: METFORMIN HYDROCHLORIDE
     Dosage: 1 DF, BID
     Route: 048
     Dates: start: 20131008
  4. NASONEX [Suspect]
     Active Substance: MOMETASONE FUROATE
     Indication: SINUSITIS
     Dosage: 2 SPRAYS , EACH NOSTRYL DAILY
     Route: 045
     Dates: start: 20140923
  5. ATENOLOL. [Concomitant]
     Active Substance: ATENOLOL
     Dosage: 1 DF, QD
     Route: 048
     Dates: start: 20131023
  6. TRAZODONE HYDROCHLORIDE. [Concomitant]
     Active Substance: TRAZODONE HYDROCHLORIDE
     Dosage: 2 DF, QPM
     Route: 048
     Dates: start: 20140826
  7. COLCHICINE. [Concomitant]
     Active Substance: COLCHICINE
     Dosage: 1 DF, AS NEEDED
     Route: 048
     Dates: start: 20140826
  8. REMERON [Concomitant]
     Active Substance: MIRTAZAPINE
     Dosage: 1 DF, QPM
     Route: 048
     Dates: start: 20140603
  9. CHOLECALCIFEROL [Concomitant]
     Active Substance: CHOLECALCIFEROL
     Dosage: 1 DF, QPM
     Route: 048
     Dates: start: 20131211

REACTIONS (2)
  - Completed suicide [Fatal]
  - Intentional overdose [Unknown]

NARRATIVE: CASE EVENT DATE: 20141231
